FAERS Safety Report 7709470-4 (Version None)
Quarter: 2011Q3

REPORT INFORMATION
  Report Type: 
  Country: None (occurrence: None)
  Receive Date: 20110825
  Receipt Date: 20110823
  Transmission Date: 20111222
  Serious: Yes (Disabling, Other)
  Sender: FDA-Public Use
  Company Number: JP-PFIZER INC-2011176543

PATIENT
  Age: 50 Year
  Sex: Male
  Weight: 48 kg

DRUGS (3)
  1. VARENICLINE TARTRATE [Suspect]
     Dosage: 1 MG, 2X/DAY
     Route: 048
     Dates: start: 20110705, end: 20110729
  2. VARENICLINE TARTRATE [Suspect]
     Dosage: 0.5 MG, 2X/DAY
     Route: 048
     Dates: start: 20110701, end: 20110704
  3. VARENICLINE TARTRATE [Suspect]
     Indication: SMOKING CESSATION THERAPY
     Dosage: 0.5 MG, 1X/DAY
     Route: 048
     Dates: start: 20110628, end: 20110630

REACTIONS (6)
  - BRAIN OEDEMA [None]
  - DYSGEUSIA [None]
  - ZINC DEFICIENCY [None]
  - RHINITIS [None]
  - WATER INTOXICATION [None]
  - HYPERAESTHESIA [None]
